FAERS Safety Report 6833867-8 (Version None)
Quarter: 2010Q3

REPORT INFORMATION
  Report Type: 
  Country: None (occurrence: None)
  Receive Date: 20100712
  Receipt Date: 20070403
  Transmission Date: 20110219
  Serious: No
  Sender: FDA-Public Use
  Company Number: US-PFIZER INC-2007027932

PATIENT
  Sex: Female
  Weight: 58.06 kg

DRUGS (10)
  1. CHANTIX [Suspect]
     Indication: SMOKING CESSATION THERAPY
     Dates: start: 20070322
  2. LEVOXYL [Concomitant]
     Indication: THYROID DISORDER
  3. AVAPRO [Concomitant]
  4. EFFEXOR XR [Concomitant]
  5. TRILEPTAL [Concomitant]
  6. CADUET [Concomitant]
  7. TOPAMAX [Concomitant]
  8. CLONAZEPAM [Concomitant]
  9. NEXIUM [Concomitant]
  10. FIORICET [Concomitant]
     Indication: HEADACHE

REACTIONS (3)
  - DIZZINESS [None]
  - OROPHARYNGEAL PAIN [None]
  - TOBACCO USER [None]
